FAERS Safety Report 9607258 (Version 1)
Quarter: 2013Q4

REPORT INFORMATION
  Report Type: Spontaneous
  Country: CA (occurrence: CA)
  Receive Date: 20131009
  Receipt Date: 20131009
  Transmission Date: 20140711
  Serious: Yes (Life-Threatening)
  Sender: FDA-Public Use
  Company Number: CA-ROCHE-1286424

PATIENT
  Age: 48 Year
  Sex: Male
  Weight: 145.28 kg

DRUGS (10)
  1. CEFTRIAXONE [Suspect]
     Indication: PRODUCT USED FOR UNKNOWN INDICATION
     Dosage: THERAPY DURATION:  2.0 DAY(S)
     Route: 042
  2. ASAPHEN [Concomitant]
     Route: 065
  3. CRESTOR [Concomitant]
     Route: 065
  4. DIOVAN HCT [Concomitant]
     Dosage: FORM STRENGTH: 160 MG/12.5 MG
     Route: 065
  5. FOLIC ACID [Concomitant]
  6. HUMALOG [Concomitant]
     Route: 065
  7. HUMULIN N [Concomitant]
     Dosage: 100 UNIT/ML
     Route: 065
  8. IMOVANE [Concomitant]
     Route: 065
  9. PLAVIX [Concomitant]
  10. RANITIDINE [Concomitant]

REACTIONS (1)
  - Hypoglycaemia [Recovered/Resolved]
